FAERS Safety Report 12384479 (Version 1)
Quarter: 2016Q2

REPORT INFORMATION
  Report Type: Spontaneous
  Country: US (occurrence: US)
  Receive Date: 20160519
  Receipt Date: 20160519
  Transmission Date: 20160815
  Serious: Yes (Hospitalization, Other)
  Sender: FDA-Public Use
  Company Number: US-ASTRAZENECA-2010BM04170

PATIENT
  Age: 24054 Day
  Sex: Male
  Weight: 117 kg

DRUGS (10)
  1. BYETTA [Suspect]
     Active Substance: EXENATIDE
     Indication: TYPE 2 DIABETES MELLITUS
     Route: 058
     Dates: start: 200608
  2. HUMATROPE [Concomitant]
     Active Substance: SOMATROPIN
     Indication: HYPOPITUITARISM
     Dosage: .2 MG, QD
     Route: 058
     Dates: start: 20080502
  3. CRESTOR [Suspect]
     Active Substance: ROSUVASTATIN CALCIUM
     Route: 048
  4. COUMADIN [Concomitant]
     Active Substance: WARFARIN SODIUM
     Indication: ATRIAL FLUTTER
     Dosage: UNK
     Dates: start: 200701
  5. LOTREL [Concomitant]
     Active Substance: AMLODIPINE BESYLATE\BENAZEPRIL HYDROCHLORIDE
     Indication: HYPERTENSION
     Dosage: UNK
     Route: 048
     Dates: start: 20070115
  6. LANOXIN [Concomitant]
     Active Substance: DIGOXIN
     Indication: ATRIAL FLUTTER
     Dosage: UNK
     Dates: start: 200701
  7. METFORMIN [Concomitant]
     Active Substance: METFORMIN HYDROCHLORIDE
     Indication: TYPE 2 DIABETES MELLITUS
     Dosage: 1000 MG, BID
     Route: 048
     Dates: start: 2000
  8. LIPITOR [Concomitant]
     Active Substance: ATORVASTATIN CALCIUM
     Dosage: UNK
     Route: 048
  9. BYETTA [Suspect]
     Active Substance: EXENATIDE
     Indication: TYPE 2 DIABETES MELLITUS
     Route: 058
     Dates: start: 200607, end: 200608
  10. BYETTA [Suspect]
     Active Substance: EXENATIDE
     Indication: TYPE 2 DIABETES MELLITUS
     Route: 058

REACTIONS (8)
  - Atrial flutter [Not Recovered/Not Resolved]
  - Incontinence [Unknown]
  - Cardiac failure congestive [Not Recovered/Not Resolved]
  - Visual acuity reduced [Unknown]
  - Complication associated with device [Recovered/Resolved]
  - Glycosylated haemoglobin increased [Recovering/Resolving]
  - Road traffic accident [Recovered/Resolved]
  - Atrioventricular block complete [Not Recovered/Not Resolved]

NARRATIVE: CASE EVENT DATE: 20070114
